FAERS Safety Report 6644167-3 (Version None)
Quarter: 2010Q1

REPORT INFORMATION
  Report Type: 
  Country: None (occurrence: None)
  Receive Date: 20100322
  Receipt Date: 20100317
  Transmission Date: 20100710
  Serious: Yes (Death, Hospitalization)
  Sender: FDA-Public Use
  Company Number: PHEH2010US01430

PATIENT
  Sex: Female

DRUGS (12)
  1. EXJADE [Suspect]
     Indication: BLOOD PRODUCT TRANSFUSION DEPENDENT
     Dosage: 1000 MG, QD
     Route: 048
     Dates: start: 20090323, end: 20090814
  2. LASIX [Concomitant]
     Indication: CARDIAC FAILURE CONGESTIVE
     Dosage: 40 MG, Q 12 HOURS
     Route: 042
     Dates: start: 20091212
  3. POTASSIUM [Concomitant]
     Dosage: 40 MBQ, BID
  4. SYNTHROID [Concomitant]
     Dosage: 75 UG, QD
  5. PROTONIX [Concomitant]
     Dosage: 40 MG, QD
  6. ALLOPURINOL [Concomitant]
     Dosage: 100 MG, QD
     Route: 048
  7. PAXIL [Concomitant]
     Dosage: 10 MG, QHS
     Route: 048
  8. ASPIRIN [Concomitant]
     Dosage: 81 MG, QD
     Route: 048
  9. DIGOXIN [Concomitant]
     Indication: CARDIAC FAILURE CONGESTIVE
     Dosage: 3 DOSES, UNK
     Route: 042
     Dates: start: 20091212
  10. HYDROCODONE [Concomitant]
     Indication: PAIN
     Dosage: 1-2 TABLETS, EVERY FOUR HOURS, PRN
  11. METOLAZONE [Concomitant]
     Dosage: 2.5 MG ON TUESDAY AND THURSDAY MORNING
     Route: 048
  12. DIPHENHYDRAMINE HYDROCHLORIDE [Concomitant]
     Dosage: 25 MG, QHS
     Route: 048

REACTIONS (17)
  - ABDOMINAL PAIN [None]
  - ALANINE AMINOTRANSFERASE INCREASED [None]
  - ANAEMIA [None]
  - ASPARTATE AMINOTRANSFERASE INCREASED [None]
  - BLOOD GLUCOSE INCREASED [None]
  - BLOOD PRESSURE DECREASED [None]
  - BLOOD SODIUM DECREASED [None]
  - BUNDLE BRANCH BLOCK LEFT [None]
  - CARDIAC FAILURE CONGESTIVE [None]
  - CARDIOACTIVE DRUG LEVEL DECREASED [None]
  - CHOLECYSTITIS [None]
  - DYSPNOEA [None]
  - JUGULAR VEIN DISTENSION [None]
  - LEUKOCYTOSIS [None]
  - OEDEMA PERIPHERAL [None]
  - RENAL FAILURE [None]
  - TACHYCARDIA [None]
